FAERS Safety Report 7838632 (Version 3)
Quarter: 2023Q1

REPORT INFORMATION
  Report Type: Spontaneous
  Country: JP (occurrence: JP)
  Receive Date: 20110303
  Receipt Date: 20230119
  Transmission Date: 20230418
  Serious: Yes (Hospitalization, Other)
  Sender: FDA-Public Use
  Company Number: JP-ASTELLAS-2011JP001423

PATIENT
  Age: 0 Year
  Sex: Male
  Weight: 1.774 kg

DRUGS (3)
  1. PROGRAF [Suspect]
     Active Substance: TACROLIMUS
     Indication: Immunosuppressant drug therapy
     Dosage: 3 MG/DAY, UNKNOWN FREQ.
     Route: 064
  2. MIZORIBINE [Concomitant]
     Active Substance: MIZORIBINE
     Indication: Immunosuppressant drug level
     Dosage: 50 MG/DAY, UNKNOWN FREQ.
     Route: 064
  3. METHYLPREDNISOLONE [Concomitant]
     Active Substance: METHYLPREDNISOLONE
     Indication: Immunosuppressant drug level
     Dosage: 2 MG/DAY, UNKNOWN FREQ.
     Route: 064

REACTIONS (3)
  - Foetal growth restriction [Recovered/Resolved]
  - Low birth weight baby [Unknown]
  - Foetal exposure during pregnancy [Unknown]

NARRATIVE: CASE EVENT DATE: 20090528
